FAERS Safety Report 9805999 (Version 1)
Quarter: 2014Q1

REPORT INFORMATION
  Report Type: Spontaneous
  Country: US (occurrence: US)
  Receive Date: 20140109
  Receipt Date: 20140109
  Transmission Date: 20141002
  Serious: Yes (Death, Hospitalization)
  Sender: FDA-Public Use
  Company Number: US-UCBSA-108413

PATIENT
  Age: 21 Year
  Sex: Male

DRUGS (8)
  1. ACETAMINOPHEN/ HYDROCODONE [Suspect]
  2. METHADONE [Suspect]
  3. OXYCODONE [Suspect]
     Dosage: EXTENDED RELEASE
  4. CLONAZEPAM [Suspect]
  5. QUETIAPINE [Suspect]
  6. CITALOPRAM [Suspect]
  7. VENLAFAXINE [Suspect]
     Dosage: EXTENDED RELEASE
  8. ARIPIRAZOLE [Suspect]

REACTIONS (2)
  - Cardio-respiratory arrest [Fatal]
  - Toxicity to various agents [Fatal]
